FAERS Safety Report 8149064-2 (Version None)
Quarter: 2012Q1

REPORT INFORMATION
  Report Type: 
  Country: None (occurrence: None)
  Receive Date: 20120218
  Receipt Date: 20110830
  Transmission Date: 20120608
  Serious: No
  Sender: FDA-Public Use
  Company Number: US-ALLERGAN-1111277US

PATIENT
  Age: 57 Year
  Sex: Female

DRUGS (3)
  1. BOTOX COSMETIC [Suspect]
     Dosage: UNK
     Route: 030
     Dates: start: 20110802, end: 20110802
  2. JUVEDERM ULTRA PLUS XC [Suspect]
     Indication: SKIN WRINKLING
     Dosage: UNK
     Dates: start: 20110719, end: 20110719
  3. BOTOX COSMETIC [Suspect]
     Indication: SKIN WRINKLING
     Dosage: 9 UNK, SINGLE
     Route: 030
     Dates: start: 20110819, end: 20110819

REACTIONS (3)
  - MUSCULOSKELETAL STIFFNESS [None]
  - DRUG INEFFECTIVE [None]
  - INJECTION SITE HAEMATOMA [None]
